FAERS Safety Report 8280784-5 (Version None)
Quarter: 2012Q2

REPORT INFORMATION
  Report Type: 
  Country: None (occurrence: None)
  Receive Date: 20120412
  Receipt Date: 20120326
  Transmission Date: 20120825
  Serious: Yes (Disabling, Other)
  Sender: FDA-Public Use
  Company Number: GB-ABBOTT-12P-167-0892881-00

PATIENT
  Age: 32 Year
  Sex: Male

DRUGS (7)
  1. PROPRANOLOL [Concomitant]
     Indication: PRODUCT USED FOR UNKNOWN INDICATION
     Route: 065
  2. TESTOGEL (GEL) [Suspect]
     Indication: ANDROGEN DEFICIENCY
     Dosage: UNKNOWN
     Route: 062
     Dates: start: 20100601, end: 20100801
  3. ANTIDEPRESSANTS [Concomitant]
     Indication: PRODUCT USED FOR UNKNOWN INDICATION
     Route: 065
  4. TESTOSTERONE [Concomitant]
     Indication: PRODUCT USED FOR UNKNOWN INDICATION
     Route: 065
     Dates: start: 20100801, end: 20101201
  5. TESTOSTERONE [Concomitant]
     Route: 065
  6. NEBIDO [Suspect]
     Dosage: 1000MG/4ML (UNKNOWN, 3 IN 1 M)
     Route: 065
     Dates: start: 20110710
  7. NEBIDO [Suspect]
     Indication: ANDROGEN DEFICIENCY
     Dosage: 1000MG/4ML (1 IN 1 M)
     Route: 065
     Dates: start: 20101202, end: 20110616

REACTIONS (8)
  - DRUG INEFFECTIVE [None]
  - PRODUCT QUALITY ISSUE [None]
  - QUALITY OF LIFE DECREASED [None]
  - DEPRESSION [None]
  - FEELING ABNORMAL [None]
  - BLOOD TESTOSTERONE ABNORMAL [None]
  - ALOPECIA [None]
  - ASTHENIA [None]
